FAERS Safety Report 18930695 (Version 1)
Quarter: 2021Q1

REPORT INFORMATION
  Report Type: Spontaneous
  Country: BR (occurrence: BR)
  Receive Date: 20210223
  Receipt Date: 20210223
  Transmission Date: 20210420
  Serious: Yes (Other)
  Sender: FDA-Public Use
  Company Number: NVSC2021BR036170

PATIENT
  Sex: Male

DRUGS (2)
  1. ENTRESTO [Suspect]
     Active Substance: SACUBITRIL\VALSARTAN
     Dosage: 100 MG (49 MG + 51 MG), BID (ONE IN THE MORNING AND ONE IN THE EVENING)
     Route: 065
     Dates: start: 202101
  2. ENTRESTO [Suspect]
     Active Substance: SACUBITRIL\VALSARTAN
     Indication: PRODUCT USED FOR UNKNOWN INDICATION
     Dosage: 28 MG, UNKNOWN
     Route: 065

REACTIONS (6)
  - Somnolence [Unknown]
  - Asthenia [Unknown]
  - Underdose [Unknown]
  - Cardiac dysfunction [Unknown]
  - Insomnia [Not Recovered/Not Resolved]
  - Poor quality sleep [Unknown]
